FAERS Safety Report 7169810-4 (Version None)
Quarter: 2010Q4

REPORT INFORMATION
  Report Type: 
  Country: None (occurrence: None)
  Receive Date: 20101217
  Receipt Date: 20101213
  Transmission Date: 20110411
  Serious: Yes (Hospitalization)
  Sender: FDA-Public Use
  Company Number: KR-SANOFI-AVENTIS-2010SA075610

PATIENT
  Age: 48 Year
  Sex: Male
  Weight: 66.4 kg

DRUGS (15)
  1. AFLIBERCEPT [Suspect]
     Indication: NON-SMALL CELL LUNG CANCER METASTATIC
     Route: 042
     Dates: start: 20091013, end: 20091013
  2. AFLIBERCEPT [Suspect]
     Route: 042
     Dates: start: 20101117, end: 20101117
  3. DOCETAXEL [Suspect]
     Indication: NON-SMALL CELL LUNG CANCER METASTATIC
     Route: 042
     Dates: start: 20091013, end: 20091013
  4. DOCETAXEL [Suspect]
     Route: 042
     Dates: start: 20101117, end: 20101117
  5. POVIDONE IODINE [Concomitant]
     Dates: start: 20091012
  6. TANTUM [Concomitant]
     Dates: start: 20091012
  7. CORTICOSTEROIDS [Concomitant]
  8. MEGESTROL ACETATE [Concomitant]
     Dates: start: 20100816
  9. MINOCIN [Concomitant]
     Dates: start: 20100927
  10. KETOPROFEN [Concomitant]
     Dates: start: 20101106, end: 20101120
  11. FEXOFENADINE HCL [Concomitant]
     Dates: start: 20101116, end: 20101120
  12. ALL OTHER THERAPEUTIC PRODUCTS [Concomitant]
     Dates: start: 20101118
  13. DIAZEPAM [Concomitant]
     Dates: start: 20100915, end: 20101119
  14. TAGAMET [Concomitant]
     Dates: start: 20100915, end: 20101119
  15. DEXAMETHASONE [Concomitant]
     Dates: start: 20100914, end: 20101120

REACTIONS (1)
  - PROTEINURIA [None]
